FAERS Safety Report 5287546-1 (Version None)
Quarter: 2007Q1

REPORT INFORMATION
  Report Type: 
  Country: None (occurrence: None)
  Receive Date: 20070126
  Receipt Date: 20061101
  Transmission Date: 20070707
  Serious: No
  Sender: FDA-Public Use
  Company Number: 2006CT000838

PATIENT
  Age: 66 Year
  Sex: Female

DRUGS (3)
  1. VENTAVIS [Suspect]
     Indication: PULMONARY HYPERTENSION
     Dosage: 5 UG;9XD;INH
     Route: 055
     Dates: start: 20060901, end: 20061031
  2. ZETIA [Concomitant]
  3. IRON [Concomitant]

REACTIONS (1)
  - BILE DUCT OBSTRUCTION [None]
